FAERS Safety Report 17758299 (Version 3)
Quarter: 2022Q2

REPORT INFORMATION
  Report Type: Report from Study
  Country: CA (occurrence: CA)
  Receive Date: 20200507
  Receipt Date: 20220509
  Transmission Date: 20220720
  Serious: Yes (Hospitalization, Other)
  Sender: FDA-Public Use
  Company Number: None

PATIENT
  Age: 51 Year
  Sex: Female

DRUGS (6)
  1. SANDOSTATIN LAR DEPOT [Suspect]
     Active Substance: OCTREOTIDE ACETATE
     Indication: Pancreatic neuroendocrine tumour
     Dosage: 20 MG, QMO (EVERY 4 WEEKS)
     Route: 030
     Dates: start: 20150409
  2. SANDOSTATIN LAR DEPOT [Suspect]
     Active Substance: OCTREOTIDE ACETATE
  3. SANDOSTATIN LAR DEPOT [Suspect]
     Active Substance: OCTREOTIDE ACETATE
  4. HYDROCHLOROTHIAZIDE [Concomitant]
     Active Substance: HYDROCHLOROTHIAZIDE
     Indication: Hypertension
     Dosage: 25 MG, QD
     Route: 065
     Dates: start: 2015
  5. FERAMAX [Concomitant]
     Active Substance: IRON\POLYSACCHARIDES
     Indication: Product used for unknown indication
     Dosage: 1 DF, BID
     Route: 048
  6. CREON [Concomitant]
     Active Substance: PANCRELIPASE AMYLASE\PANCRELIPASE LIPASE\PANCRELIPASE PROTEASE
     Indication: Product used for unknown indication
     Dosage: 1 DF, TID (25000 UNITS)
     Route: 065

REACTIONS (32)
  - Haematemesis [Recovering/Resolving]
  - Faecal vomiting [Recovering/Resolving]
  - Syncope [Recovering/Resolving]
  - Fall [Recovering/Resolving]
  - Head injury [Recovering/Resolving]
  - Wound [Recovering/Resolving]
  - Wound haemorrhage [Recovering/Resolving]
  - Vomiting [Recovering/Resolving]
  - Multiple endocrine neoplasia [Unknown]
  - Pancreatitis [Unknown]
  - Anxiety [Unknown]
  - Weight increased [Unknown]
  - Influenza like illness [Unknown]
  - Asthenia [Recovered/Resolved]
  - Fatigue [Recovered/Resolved]
  - Illness [Unknown]
  - Sciatica [Unknown]
  - Lipoma [Unknown]
  - Mean cell volume increased [Unknown]
  - Mean cell haemoglobin decreased [Unknown]
  - Blood phosphorus decreased [Unknown]
  - Asthenia [Recovering/Resolving]
  - Feeling abnormal [Unknown]
  - Movement disorder [Recovering/Resolving]
  - Drug intolerance [Unknown]
  - Myalgia [Unknown]
  - Gait disturbance [Recovering/Resolving]
  - Pain in extremity [Unknown]
  - Flatulence [Unknown]
  - Blood pressure increased [Unknown]
  - Injection site pain [Unknown]
  - Heart rate increased [Unknown]

NARRATIVE: CASE EVENT DATE: 20150504
